FAERS Safety Report 6424590-2 (Version None)
Quarter: 2009Q4

REPORT INFORMATION
  Report Type: 
  Country: None (occurrence: None)
  Receive Date: 20091103
  Receipt Date: 20091021
  Transmission Date: 20100525
  Serious: Yes (Other)
  Sender: FDA-Public Use
  Company Number: PHEH2009US12314

PATIENT
  Sex: Female
  Weight: 61.36 kg

DRUGS (3)
  1. EXJADE [Suspect]
     Indication: SERUM FERRITIN INCREASED
     Dosage: 1125 MG DAILY
     Route: 048
     Dates: start: 20090610
  2. EXJADE [Suspect]
     Indication: TRANSFUSION
     Route: 048
  3. EXJADE [Suspect]
     Indication: IRON OVERLOAD

REACTIONS (5)
  - DEAFNESS UNILATERAL [None]
  - DIARRHOEA [None]
  - DIPLOPIA [None]
  - FATIGUE [None]
  - VISION BLURRED [None]
